FAERS Safety Report 4639716-0 (Version None)
Quarter: 2005Q2

REPORT INFORMATION
  Report Type: 
  Country: None (occurrence: None)
  Receive Date: 20050328
  Receipt Date: 20041222
  Transmission Date: 20051028
  Serious: No
  Sender: FDA-Public Use
  Company Number: USA041286859

PATIENT
  Age: 46 Year
  Sex: Male
  Weight: 93 kg

DRUGS (3)
  1. STRATTERA [Suspect]
     Dosage: 25 MG DAY
     Dates: start: 20041101, end: 20041219
  2. ATIVAN [Concomitant]
  3. VITAMINS [Concomitant]

REACTIONS (6)
  - DRUG INEFFECTIVE [None]
  - DRY MOUTH [None]
  - EJACULATION DISORDER [None]
  - HALITOSIS [None]
  - PAIN [None]
  - URINARY HESITATION [None]
